FAERS Safety Report 19827101 (Version 2)
Quarter: 2021Q3

REPORT INFORMATION
  Report Type: Spontaneous
  Country: FR (occurrence: FR)
  Receive Date: 20210914
  Receipt Date: 20210919
  Transmission Date: 20211014
  Serious: Yes (Other)
  Sender: FDA-Public Use
  Company Number: NVSC2021FR203161

PATIENT
  Age: 14 Year
  Sex: Male

DRUGS (1)
  1. VOTUBIA [Suspect]
     Active Substance: EVEROLIMUS
     Indication: PRODUCT USED FOR UNKNOWN INDICATION
     Dosage: 10 MG
     Route: 065
     Dates: start: 202107

REACTIONS (3)
  - Brain neoplasm [Unknown]
  - Product dispensing error [Unknown]
  - Neoplasm [Unknown]
